FAERS Safety Report 4289063-4 (Version None)
Quarter: 2004Q1

REPORT INFORMATION
  Report Type: 
  Country: None (occurrence: None)
  Receive Date: 20040209
  Receipt Date: 20030114
  Transmission Date: 20041129
  Serious: Yes (Hospitalization, Disabling)
  Sender: FDA-Public Use
  Company Number: WAES 0301USA01135

PATIENT
  Age: 49 Year
  Sex: Male
  Weight: 86 kg

DRUGS (4)
  1. ACETAMINOPHEN AND HYDROCODONE BITARTRATE [Concomitant]
  2. CELEBREX [Concomitant]
  3. VIOXX [Suspect]
     Indication: ARTHRALGIA
     Route: 048
     Dates: start: 20001025, end: 20011231
  4. VIOXX [Suspect]
     Indication: JOINT SWELLING
     Route: 048
     Dates: start: 20001025, end: 20011231

REACTIONS (12)
  - BACK INJURY [None]
  - CARDIOVASCULAR DISORDER [None]
  - CEREBROVASCULAR ACCIDENT [None]
  - DEPRESSION [None]
  - DIABETES MELLITUS [None]
  - EMOTIONAL DISTRESS [None]
  - EYE DISORDER [None]
  - GLAUCOMA [None]
  - HYPERTENSION [None]
  - PROSTATIC DISORDER [None]
  - SLEEP DISORDER [None]
  - SURGERY [None]
